FAERS Safety Report 9060473 (Version 2)
Quarter: 2014Q1

REPORT INFORMATION
  Report Type: Spontaneous
  Country: DE (occurrence: DE)
  Receive Date: 20130212
  Receipt Date: 20140228
  Transmission Date: 20141002
  Serious: Yes (Congenital Anomaly, Other)
  Sender: FDA-Public Use
  Company Number: PHHY2013DE012582

PATIENT
  Sex: Male

DRUGS (6)
  1. HYDROCHLOROTHIAZIDE [Suspect]
     Route: 064
  2. CANDESARTAN CILEXETIL [Suspect]
     Dosage: (MATERNAL DOSE: 8 MG/DAY)
     Route: 064
  3. RAMIPRIL [Suspect]
     Route: 064
  4. TORASEMIDE [Suspect]
     Route: 064
  5. PREDNISONE [Suspect]
     Route: 064
  6. ESOMEPRAZOLE [Suspect]
     Route: 064

REACTIONS (13)
  - Neonatal respiratory distress syndrome [Unknown]
  - Patent ductus arteriosus [Unknown]
  - Ventricular septal defect [Unknown]
  - Atrial septal defect [Unknown]
  - Mitral valve incompetence [Unknown]
  - Hypotonia neonatal [Recovered/Resolved]
  - Joint contracture [Unknown]
  - Hydrocele [Unknown]
  - Inguinal hernia [Unknown]
  - Congenital renal disorder [Unknown]
  - Premature baby [Unknown]
  - Blood creatinine increased [Recovered/Resolved]
  - Foetal exposure during pregnancy [Unknown]
